FAERS Safety Report 5986970-9 (Version None)
Quarter: 2008Q4

REPORT INFORMATION
  Report Type: 
  Country: None (occurrence: None)
  Receive Date: 20081209
  Receipt Date: 20080904
  Transmission Date: 20090506
  Serious: No
  Sender: FDA-Public Use
  Company Number: US-AMGEN-KDL304795

PATIENT
  Sex: Female

DRUGS (6)
  1. ENBREL [Suspect]
     Indication: RHEUMATOID ARTHRITIS
     Route: 058
     Dates: start: 20060616
  2. METHOTREXATE [Concomitant]
     Dates: start: 20060616
  3. PREDNISONE TAB [Concomitant]
  4. CYMBALTA [Concomitant]
  5. FOLIC ACID [Concomitant]
  6. VITAMIN TAB [Concomitant]

REACTIONS (5)
  - HEPATIC ENZYME INCREASED [None]
  - INJECTION SITE ERYTHEMA [None]
  - INJECTION SITE SWELLING [None]
  - NAIL DISORDER [None]
  - RHEUMATOID ARTHRITIS [None]
